FAERS Safety Report 23556124 (Version 1)
Quarter: 2024Q1

REPORT INFORMATION
  Report Type: Spontaneous
  Country: US (occurrence: US)
  Receive Date: 20240222
  Receipt Date: 20240222
  Transmission Date: 20240410
  Serious: No
  Sender: FDA-Public Use
  Company Number: US-TAKEDA-2024TUS016514

PATIENT
  Sex: Female
  Weight: 79 kg

DRUGS (2)
  1. TRINTELLIX [Suspect]
     Active Substance: VORTIOXETINE HYDROBROMIDE
     Indication: Depression
     Dosage: 20 MILLIGRAM, QD
     Route: 065
  2. GEMTESA [Concomitant]
     Active Substance: VIBEGRON
     Dosage: UNK

REACTIONS (1)
  - Oropharyngeal discomfort [Unknown]
